FAERS Safety Report 5016580-1 (Version None)
Quarter: 2006Q2

REPORT INFORMATION
  Report Type: 
  Country: None (occurrence: None)
  Receive Date: 20060419
  Receipt Date: 20060309
  Transmission Date: 20061013
  Serious: Yes (Other)
  Sender: FDA-Public Use
  Company Number: 2006027494

PATIENT
  Age: 16 Year
  Sex: Female
  Weight: 61.2356 kg

DRUGS (5)
  1. DEPO-SUB PROVERA 104 EP (MEDROXYPROGESTERONE ACETATE) [Suspect]
     Indication: ENDOMETRIOSIS
     Dosage: SEE IMAGE
     Dates: start: 20050801, end: 20050801
  2. DEPO-SUB PROVERA 104 EP (MEDROXYPROGESTERONE ACETATE) [Suspect]
     Indication: ENDOMETRIOSIS
     Dosage: SEE IMAGE
     Dates: start: 20060208, end: 20060208
  3. ESTER-C (CALCIUM ASCORBATE) [Concomitant]
  4. CALCIUM GLUCONATE [Concomitant]
  5. VITAMIN E [Concomitant]

REACTIONS (6)
  - DISEASE PROGRESSION [None]
  - INCORRECT DOSE ADMINISTERED [None]
  - METRORRHAGIA [None]
  - OVARIAN OPERATION [None]
  - PAIN [None]
  - WEIGHT INCREASED [None]
